FAERS Safety Report 18441053 (Version 2)
Quarter: 2021Q1

REPORT INFORMATION
  Report Type: Spontaneous
  Country: IN (occurrence: IN)
  Receive Date: 20201029
  Receipt Date: 20210108
  Transmission Date: 20210419
  Serious: Yes (Other)
  Sender: FDA-Public Use
  Company Number: IN-STRIDES ARCOLAB LIMITED-2020SP012836

PATIENT
  Age: 55 Year
  Sex: Female

DRUGS (1)
  1. METHOXSALEN. [Suspect]
     Active Substance: METHOXSALEN
     Indication: VITILIGO
     Dosage: 10 MILLIGRAM, BID, WITH PUVA THERAPY (THREE EPISODES WEEKLY FOR 1?YEAR DURATION.
     Route: 048

REACTIONS (6)
  - Maculopathy [Unknown]
  - Retinal toxicity [Unknown]
  - Macular degeneration [Unknown]
  - Retinal degeneration [Unknown]
  - Visual impairment [Unknown]
  - Off label use [Unknown]
